FAERS Safety Report 6071981-8 (Version None)
Quarter: 2009Q1

REPORT INFORMATION
  Report Type: 
  Country: None (occurrence: None)
  Receive Date: 20090210
  Receipt Date: 20090202
  Transmission Date: 20090719
  Serious: Yes (Hospitalization)
  Sender: FDA-Public Use
  Company Number: US-BIOGENIDEC-2007BI014797

PATIENT
  Age: 68 Year
  Sex: Male

DRUGS (1)
  1. AVONEX [Suspect]
     Indication: MULTIPLE SCLEROSIS
     Route: 030
     Dates: start: 20061111

REACTIONS (7)
  - ABDOMINAL PAIN UPPER [None]
  - DYSURIA [None]
  - GASTROINTESTINAL MOTILITY DISORDER [None]
  - ILL-DEFINED DISORDER [None]
  - PAIN [None]
  - PNEUMONIA [None]
  - RECTAL CANCER STAGE I [None]
